FAERS Safety Report 8473325-0 (Version None)
Quarter: 2012Q2

REPORT INFORMATION
  Report Type: 
  Country: None (occurrence: None)
  Receive Date: 20120628
  Receipt Date: 20120618
  Transmission Date: 20120825
  Serious: Yes (Hospitalization)
  Sender: FDA-Public Use
  Company Number: IT-BRISTOL-MYERS SQUIBB COMPANY-16706046

PATIENT

DRUGS (3)
  1. FLUOROURACIL [Concomitant]
     Route: 042
     Dates: start: 20110622, end: 20111102
  2. IRINOTECAN HCL [Concomitant]
     Route: 042
     Dates: start: 20110622, end: 20111102
  3. ERBITUX [Suspect]
     Indication: COLORECTAL CANCER
     Route: 042
     Dates: start: 20110622, end: 20111102

REACTIONS (2)
  - GASTROINTESTINAL TOXICITY [None]
  - SKIN ULCER [None]
